FAERS Safety Report 8435162-2 (Version None)
Quarter: 2012Q2

REPORT INFORMATION
  Report Type: 
  Country: None (occurrence: None)
  Receive Date: 20120614
  Receipt Date: 20110623
  Transmission Date: 20120825
  Serious: No
  Sender: FDA-Public Use
  Company Number: US-PFIZER INC-K201100751

PATIENT
  Age: 21 Year
  Sex: Female
  Weight: 63.039 kg

DRUGS (1)
  1. BICILLIN L-A [Suspect]
     Indication: STREPTOCOCCAL INFECTION
     Dosage: UNK
     Route: 030
     Dates: start: 20110623, end: 20110623

REACTIONS (2)
  - NO ADVERSE EVENT [None]
  - DRUG ADMINISTERED AT INAPPROPRIATE SITE [None]
